FAERS Safety Report 18959926 (Version 1)
Quarter: 2021Q1

REPORT INFORMATION
  Report Type: Spontaneous
  Country: NO (occurrence: NO)
  Receive Date: 20210302
  Receipt Date: 20210302
  Transmission Date: 20210420
  Serious: Yes (Death, Other)
  Sender: FDA-Public Use
  Company Number: NO-PURDUE-USA-2021-0220503

PATIENT
  Age: 93 Year
  Sex: Female

DRUGS (13)
  1. OXYCONTIN [Suspect]
     Active Substance: OXYCODONE HYDROCHLORIDE
     Indication: PELVIC FRACTURE
     Dosage: 5 MG, Q12H [AGAINST PAIN AFTER PELVIC FRACTURE]
     Route: 048
     Dates: start: 20210201, end: 20210202
  2. CALCIGRAN FORTE [Concomitant]
     Active Substance: CALCIUM CARBONATE\CHOLECALCIFEROL
     Indication: OSTEOPOROSIS
     Dosage: 2 DF, Q24H [MORNING.]
     Route: 048
     Dates: start: 20210201, end: 20210202
  3. LAXOBERAL [Concomitant]
     Active Substance: SODIUM PICOSULFATE
     Indication: CONSTIPATION
     Dosage: UNK [10?15 GTT. IN THE EVENING, AS NEEDED.]
     Route: 048
     Dates: start: 20200911, end: 20210202
  4. ELIQUIS [Concomitant]
     Active Substance: APIXABAN
     Indication: ATRIAL FIBRILLATION
     Dosage: 2.5 MG, Q12H
     Route: 048
     Dates: start: 20201030, end: 20210202
  5. SOBRIL [Concomitant]
     Active Substance: OXAZEPAM
     Indication: ANXIETY
     Dosage: 1 TABLET, [1 TABLET (10 MG) UP TO 3 TIME DAILY, AS NEEDED.
     Route: 048
     Dates: start: 20201106, end: 20210202
  6. SOMAC [Concomitant]
     Active Substance: PANTOPRAZOLE SODIUM
     Indication: PROPHYLAXIS AGAINST GASTROINTESTINAL ULCER
     Dosage: 20 MG, DAILY
     Route: 048
     Dates: start: 20201030, end: 20210202
  7. METOPROLOL SANDOZ                  /00376902/ [Concomitant]
     Active Substance: METOPROLOL
     Indication: CARDIAC FAILURE
     Dosage: 100 MG, DAILY
     Route: 048
     Dates: start: 20201106, end: 20210202
  8. VENTOLINE                          /00139501/ [Concomitant]
     Active Substance: ALBUTEROL
     Indication: CHRONIC OBSTRUCTIVE PULMONARY DISEASE
     Dosage: 5 MG, Q12H
     Route: 055
     Dates: start: 20210122, end: 20210202
  9. ATROVENT [Concomitant]
     Active Substance: IPRATROPIUM BROMIDE
     Indication: CHRONIC OBSTRUCTIVE PULMONARY DISEASE
     Dosage: 0.5 MG, Q12H
     Route: 055
     Dates: start: 20210122, end: 20210202
  10. BURINEX [Concomitant]
     Active Substance: BUMETANIDE
     Indication: CARDIAC FAILURE
     Dosage: BID [1 MG MORNING, 0.5 MG MID?DAY.]
     Route: 048
     Dates: start: 20201030, end: 20210202
  11. PARACET                            /00020001/ [Concomitant]
     Active Substance: ACETAMINOPHEN
     Indication: PAIN
     Dosage: 1 G, Q8H
     Route: 048
     Dates: start: 20210201, end: 20210202
  12. OXYGEN. [Concomitant]
     Active Substance: OXYGEN
     Indication: HYPOXIA
     Dosage: UNK [1?2 LITER PER NASAL CANULA]
     Route: 055
     Dates: start: 20201030, end: 20210202
  13. REMERON [Concomitant]
     Active Substance: MIRTAZAPINE
     Indication: PRODUCT USED FOR UNKNOWN INDICATION
     Dosage: 15 MG, Q24H [EVENING]
     Route: 048
     Dates: start: 20201106, end: 20210202

REACTIONS (8)
  - Depressed level of consciousness [Fatal]
  - Restlessness [Fatal]
  - Pain [Fatal]
  - Dysphagia [Fatal]
  - Pruritus [Fatal]
  - Muscle spasms [Fatal]
  - Anxiety [Fatal]
  - Chills [Fatal]

NARRATIVE: CASE EVENT DATE: 20210201
